FAERS Safety Report 10983559 (Version 1)
Quarter: 2015Q2

REPORT INFORMATION
  Report Type: Spontaneous
  Country: GB (occurrence: GB)
  Receive Date: 20150403
  Receipt Date: 20150403
  Transmission Date: 20150821
  Serious: Yes (Hospitalization)
  Sender: FDA-Public Use
  Company Number: GB-PFIZER INC-2015111727

PATIENT
  Age: 44 Year
  Sex: Female
  Weight: 57 kg

DRUGS (2)
  1. PREGABALIN. [Suspect]
     Active Substance: PREGABALIN
     Indication: DEPRESSION
     Dosage: 25 MG, UNK
     Route: 048
     Dates: start: 20150318, end: 20150319
  2. SERTRALINE [Concomitant]
     Active Substance: SERTRALINE HYDROCHLORIDE
     Dosage: UNK

REACTIONS (10)
  - Hyperhidrosis [Unknown]
  - Burning sensation [Unknown]
  - Flushing [Recovered/Resolved]
  - Nausea [Unknown]
  - Fear [Unknown]
  - Pain [Unknown]
  - Pruritus [Unknown]
  - Syncope [Recovered/Resolved]
  - Confusional state [Recovered/Resolved]
  - Ear discomfort [Unknown]

NARRATIVE: CASE EVENT DATE: 20150318
